FAERS Safety Report 4305637-6 (Version None)
Quarter: 2004Q1

REPORT INFORMATION
  Report Type: 
  Country: None (occurrence: None)
  Receive Date: 20040225
  Receipt Date: 20040213
  Transmission Date: 20041129
  Serious: Yes (Hospitalization, Other)
  Sender: FDA-Public Use
  Company Number: US-JNJFOC-20031001141

PATIENT
  Age: 60 Year
  Sex: Female

DRUGS (18)
  1. REMICADE [Suspect]
     Indication: RHEUMATOID ARTHRITIS
  2. K-DUR 10 [Concomitant]
  3. EFFEXOR [Concomitant]
  4. ATENOLOL [Concomitant]
  5. DIOVAN [Concomitant]
  6. LIPITOR [Concomitant]
  7. SYNTHROID [Concomitant]
  8. PREDNISONE [Concomitant]
  9. ACIPHEX [Concomitant]
  10. LEVOXYL [Concomitant]
  11. SALAGEN [Concomitant]
  12. CAL-MAG (CALMAG D) [Concomitant]
  13. MULTIVITAMIN [Concomitant]
  14. ESTRADIOL [Concomitant]
  15. ALPRAZOLAM [Concomitant]
  16. FLAX SEED OIL (LINSEED OIL) [Concomitant]
  17. LASIX [Concomitant]
  18. RISPERDAL [Concomitant]

REACTIONS (25)
  - ANTINUCLEAR ANTIBODY POSITIVE [None]
  - BLOOD ALKALINE PHOSPHATASE INCREASED [None]
  - BLOOD PH INCREASED [None]
  - BRONCHIAL OEDEMA [None]
  - C-REACTIVE PROTEIN INCREASED [None]
  - CHILLS [None]
  - DYSPNOEA [None]
  - FEELING ABNORMAL [None]
  - HAEMATOCRIT DECREASED [None]
  - HAEMOGLOBIN DECREASED [None]
  - HYPONATRAEMIA [None]
  - INTERSTITIAL LUNG DISEASE [None]
  - LIVER FUNCTION TEST ABNORMAL [None]
  - NAUSEA [None]
  - OEDEMA PERIPHERAL [None]
  - OXYGEN SATURATION DECREASED [None]
  - PCO2 DECREASED [None]
  - PERICARDIAL EFFUSION [None]
  - PLEURAL EFFUSION [None]
  - PLEURISY [None]
  - PO2 DECREASED [None]
  - PROTHROMBIN TIME SHORTENED [None]
  - RED BLOOD CELL SEDIMENTATION RATE INCREASED [None]
  - VENTRICULAR HYPERTROPHY [None]
  - VOMITING [None]
